FAERS Safety Report 9218178 (Version 2)
Quarter: 2013Q2

REPORT INFORMATION
  Report Type: Spontaneous
  Country: US (occurrence: US)
  Receive Date: 20130408
  Receipt Date: 20130627
  Transmission Date: 20140414
  Serious: Yes (Other)
  Sender: FDA-Public Use
  Company Number: PHHY2013US032703

PATIENT
  Age: 40 Year
  Sex: Female

DRUGS (2)
  1. THIAMAZOLE [Suspect]
     Indication: BASEDOW^S DISEASE
  2. PROPYLTHIOURACIL [Suspect]
     Indication: BASEDOW^S DISEASE

REACTIONS (6)
  - Haematuria [Recovered/Resolved]
  - Pericardial effusion [Recovered/Resolved]
  - Pleural effusion [Recovered/Resolved]
  - Proteinuria [Recovered/Resolved]
  - Vasculitis [Recovered/Resolved]
  - Antineutrophil cytoplasmic antibody positive [Recovered/Resolved]
